FAERS Safety Report 17813376 (Version 1)
Quarter: 2020Q2

REPORT INFORMATION
  Report Type: Spontaneous
  Country: FR (occurrence: FR)
  Receive Date: 20200521
  Receipt Date: 20200521
  Transmission Date: 20200714
  Serious: Yes (Congenital Anomaly, Other)
  Sender: FDA-Public Use
  Company Number: FR-ABBVIE-17P-056-2121158-00

PATIENT
  Sex: Male

DRUGS (2)
  1. DEPAKINE CHRONO [Suspect]
     Active Substance: VALPROATE SODIUM
     Indication: MATERNAL EXPOSURE TIMING UNSPECIFIED
     Route: 064
     Dates: start: 20091101, end: 20100708
  2. LAMICTAL [Suspect]
     Active Substance: LAMOTRIGINE
     Indication: MATERNAL EXPOSURE TIMING UNSPECIFIED
     Route: 064
     Dates: start: 200911, end: 201007

REACTIONS (26)
  - Psychomotor skills impaired [Unknown]
  - Dysmorphism [Unknown]
  - Pharyngeal disorder [Unknown]
  - Learning disorder [Unknown]
  - Speech disorder developmental [Unknown]
  - Dysgraphia [Unknown]
  - Hypermobility syndrome [Unknown]
  - Fatigue [Unknown]
  - Anxiety [Unknown]
  - Foetal exposure during pregnancy [Unknown]
  - Sleep disorder [Unknown]
  - Nasal disorder [Unknown]
  - Attention deficit hyperactivity disorder [Recovering/Resolving]
  - Foot deformity [Unknown]
  - Behaviour disorder [Unknown]
  - Ear disorder [Unknown]
  - Disturbance in attention [Unknown]
  - Muscle tone disorder [Unknown]
  - Language disorder [Unknown]
  - Hypoacusis [Unknown]
  - Hypospadias [Unknown]
  - Visuospatial deficit [Unknown]
  - Emotional disorder [Unknown]
  - Hypotonia [Unknown]
  - Umbilical hernia [Unknown]
  - Joint laxity [Unknown]

NARRATIVE: CASE EVENT DATE: 2016
